FAERS Safety Report 4559274-9 (Version None)
Quarter: 2005Q1

REPORT INFORMATION
  Report Type: 
  Country: None (occurrence: None)
  Receive Date: 20050124
  Receipt Date: 20050114
  Transmission Date: 20050727
  Serious: Yes (Life-Threatening)
  Sender: FDA-Public Use
  Company Number: FR-ROCHE-392640

PATIENT
  Age: 54 Year
  Sex: Male
  Weight: 65 kg

DRUGS (2)
  1. KYTRIL [Suspect]
     Indication: DRUG USE FOR UNKNOWN INDICATION
     Route: 042
     Dates: start: 20041125, end: 20041125
  2. GEMZAR [Suspect]
     Indication: RESPIRATORY TRACT CARCINOMA IN SITU
     Route: 042
     Dates: start: 20040917, end: 20041125

REACTIONS (11)
  - ANOXIA [None]
  - CHILLS [None]
  - COUGH [None]
  - CYANOSIS [None]
  - DYSPNOEA [None]
  - GENERAL PHYSICAL HEALTH DETERIORATION [None]
  - HYPERHIDROSIS [None]
  - HYPOXIA [None]
  - LYMPHANGITIS [None]
  - PYREXIA [None]
  - TACHYPNOEA [None]
